FAERS Safety Report 7417054-0 (Version None)
Quarter: 2011Q2

REPORT INFORMATION
  Report Type: 
  Country: None (occurrence: None)
  Receive Date: 20110415
  Receipt Date: 20091226
  Transmission Date: 20111010
  Serious: Yes (Death, Other)
  Sender: FDA-Public Use
  Company Number: US-BAYER-200943555NA

PATIENT
  Age: 75 Year
  Sex: Female
  Weight: 73 kg

DRUGS (21)
  1. PLATELETS [Concomitant]
     Dosage: 10 PACKS
     Dates: start: 20050429
  2. NITROGLYCERIN [Concomitant]
  3. PENTOTHAL [Concomitant]
     Dosage: UNK
     Route: 042
     Dates: start: 20050429
  4. DIPRIVAN [Concomitant]
     Dosage: UNK
     Route: 042
     Dates: start: 20050429
  5. PROTAMINE SULFATE [Concomitant]
     Dosage: UNK
     Route: 042
     Dates: start: 20050429
  6. PLASMA [Concomitant]
     Dosage: UNK
     Dates: start: 20050429
  7. DOPAMINE HCL [Concomitant]
     Dosage: UNK
     Route: 042
     Dates: start: 20050429
  8. EPINEPHRINE [Concomitant]
     Dosage: UNK
     Route: 042
     Dates: start: 20050429
  9. TRASYLOL [Suspect]
     Indication: CORONARY ARTERY BYPASS
     Dosage: 200ML VIA CARDIOPULMONARY BYPASS, 400ML LD FOLLOWED BY 50ML/HR
     Route: 042
     Dates: start: 20050429, end: 20050429
  10. ATENOLOL [Concomitant]
  11. CRESTOR [Concomitant]
  12. SOLU-MEDROL [Concomitant]
     Dosage: UNK
     Route: 042
     Dates: start: 20050429
  13. PAPAVERINE [Concomitant]
     Dosage: UNK
     Dates: start: 20050429
  14. LISINOPRIL [Concomitant]
  15. LIDOCAINE [Concomitant]
     Dosage: UNK
     Route: 042
     Dates: start: 20050429
  16. VANCOMYCIN [Concomitant]
     Dosage: 2 G, UNK
     Route: 042
     Dates: start: 20050429
  17. NITROGLYCERIN [Concomitant]
     Dosage: UNK
     Route: 042
     Dates: start: 20050428
  18. ATIVAN [Concomitant]
  19. FENTANYL [Concomitant]
     Dosage: UNK
     Route: 042
     Dates: start: 20050429
  20. DOBUTAMINE HCL [Concomitant]
     Dosage: UNK
     Route: 042
     Dates: start: 20050429
  21. HEPARIN [Concomitant]
     Dosage: UNK
     Route: 042
     Dates: start: 20050429

REACTIONS (8)
  - RENAL FAILURE [None]
  - DEATH [None]
  - INJURY [None]
  - ANXIETY [None]
  - RENAL INJURY [None]
  - EMOTIONAL DISTRESS [None]
  - PAIN [None]
  - UNEVALUABLE EVENT [None]
